FAERS Safety Report 8911693 (Version 2)
Quarter: 2012Q4

REPORT INFORMATION
  Report Type: 
  Country: JP (occurrence: JP)
  Receive Date: 20121115
  Receipt Date: 20121203
  Transmission Date: 20130627
  Serious: Yes (Hospitalization)
  Sender: FDA-Public Use
  Company Number: JP-ELI_LILLY_AND_COMPANY-JP201211002262

PATIENT
  Age: 61 Year
  Sex: Female

DRUGS (4)
  1. BYETTA [Suspect]
     Indication: TYPE 2 DIABETES MELLITUS
     Dosage: 10 ug, UNK
     Route: 058
     Dates: start: 201108
  2. GLIMICRON [Concomitant]
     Indication: TYPE 2 DIABETES MELLITUS
     Dosage: UNK
     Route: 048
  3. METFORMIN HYDROCHLORIDE [Concomitant]
     Indication: TYPE 2 DIABETES MELLITUS
     Dosage: UNK
     Route: 048
  4. PREDNISOLONE [Concomitant]
     Dosage: UNK
     Route: 048

REACTIONS (1)
  - Hyperglycaemia [Recovering/Resolving]
